FAERS Safety Report 7423354-0 (Version None)
Quarter: 2011Q2

REPORT INFORMATION
  Report Type: 
  Country: None (occurrence: None)
  Receive Date: 20110419
  Receipt Date: 20110405
  Transmission Date: 20111010
  Serious: Yes (Other)
  Sender: FDA-Public Use
  Company Number: PHHY2011FR16697

PATIENT
  Sex: Female
  Weight: 98 kg

DRUGS (6)
  1. RASILEZ [Suspect]
     Dosage: 300 MG, DAILY
     Route: 048
     Dates: start: 20101214, end: 20101215
  2. SERETIDE ^ALLEN + HANBURYS LTD^ [Concomitant]
     Indication: ASTHMA
     Dosage: 500 UG, DAILY
  3. UVEDOSE [Concomitant]
     Dosage: 10000 IU, UNK
  4. LEVOTHYROX [Concomitant]
     Indication: HYPOTHYROIDISM
     Dosage: 112.5 UG, DAILY
     Dates: start: 19990101
  5. BONIVA [Concomitant]
     Indication: OSTEOPOROSIS
     Dosage: 150 MG, DAILY
     Dates: start: 20100601
  6. CETIRIZINE HCL [Concomitant]
     Indication: HYPERSENSITIVITY

REACTIONS (4)
  - BURNING SENSATION [None]
  - ANAPHYLACTIC REACTION [None]
  - ANGIOEDEMA [None]
  - DYSPNOEA [None]
